FAERS Safety Report 5524144-6 (Version None)
Quarter: 2007Q4

REPORT INFORMATION
  Report Type: 
  Country: None (occurrence: None)
  Receive Date: 20071121
  Receipt Date: 20071112
  Transmission Date: 20080405
  Serious: Yes (Death)
  Sender: FDA-Public Use
  Company Number: SK-PFIZER INC-2007095310

PATIENT
  Sex: Male
  Weight: 93 kg

DRUGS (9)
  1. SU-011,248 [Suspect]
     Indication: METASTATIC RENAL CELL CARCINOMA
     Route: 048
     Dates: start: 20060719, end: 20071107
  2. CIPROFLOXACIN [Concomitant]
     Dates: start: 20061117, end: 20061123
  3. AMLODIPINE [Concomitant]
  4. DIROTON [Concomitant]
  5. FENOFIBRATE [Concomitant]
  6. ABAKTAL [Concomitant]
     Dates: start: 20061218, end: 20061227
  7. CEFUROXIME [Concomitant]
  8. MESOCAIN [Concomitant]
     Dates: start: 20070415, end: 20070415
  9. ALGIFEN [Concomitant]
     Dates: start: 20070415, end: 20070415

REACTIONS (3)
  - CARDIAC FAILURE [None]
  - LOSS OF CONSCIOUSNESS [None]
  - MYOCARDIAL INFARCTION [None]
